FAERS Safety Report 7377618-X (Version None)
Quarter: 2011Q1

REPORT INFORMATION
  Report Type: 
  Country: None (occurrence: None)
  Receive Date: 20110316
  Receipt Date: 20110302
  Transmission Date: 20110831
  Serious: Yes (Life-Threatening, Hospitalization)
  Sender: FDA-Public Use
  Company Number: 2011001040

PATIENT
  Age: 57 Year
  Sex: Female

DRUGS (1)
  1. TARCEVA [Suspect]
     Indication: NEOPLASM
     Dosage: 150 MG, QD ,ORAL
     Route: 048
     Dates: start: 20080123, end: 20110215

REACTIONS (3)
  - COLLAPSE OF LUNG [None]
  - PNEUMONIA [None]
  - NEOPLASM MALIGNANT [None]
